FAERS Safety Report 9355238 (Version 4)
Quarter: 2013Q4

REPORT INFORMATION
  Report Type: Report from Study
  Country: FR (occurrence: FR)
  Receive Date: 20130619
  Receipt Date: 20131217
  Transmission Date: 20140711
  Serious: Yes (Other)
  Sender: FDA-Public Use
  Company Number: PHHY2013FR062158

PATIENT
  Age: 36 Year
  Sex: Female

DRUGS (3)
  1. TASIGNA [Suspect]
     Dosage: 600 MG/DAY
     Route: 048
     Dates: start: 20130511, end: 20130701
  2. LEVOTHYROX [Concomitant]
     Indication: HYPOTHYROIDISM
     Dosage: 150 UG, QD
     Dates: start: 2009
  3. ZYLORIC [Concomitant]
     Indication: PROPHYLAXIS
     Dosage: 100 MG, QD
     Dates: start: 20130525, end: 20130610

REACTIONS (3)
  - Electrocardiogram QT prolonged [Not Recovered/Not Resolved]
  - Hypocalcaemia [Not Recovered/Not Resolved]
  - Dysaesthesia [Not Recovered/Not Resolved]
